FAERS Safety Report 5315661-2 (Version None)
Quarter: 2007Q2

REPORT INFORMATION
  Report Type: 
  Country: None (occurrence: None)
  Receive Date: 20070430
  Receipt Date: 20070430
  Transmission Date: 20071010
  Serious: Yes (Other)
  Sender: FDA-Public Use
  Company Number: None

PATIENT
  Age: 80 Year
  Sex: Female
  Weight: 82.1011 kg

DRUGS (1)
  1. CIPRO IV [Suspect]
     Indication: URINARY TRACT INFECTION
     Dosage: 400 MG   EVERY 12 HOURS  IV DRIP
     Route: 041
     Dates: start: 20070428, end: 20070429

REACTIONS (4)
  - ANGIOPATHY [None]
  - ERYTHEMA [None]
  - INFUSION RELATED REACTION [None]
  - URTICARIA [None]
